FAERS Safety Report 22196049 (Version 6)
Quarter: 2023Q4

REPORT INFORMATION
  Report Type: Report from Study
  Country: FR (occurrence: None)
  Receive Date: 20230411
  Receipt Date: 20231123
  Transmission Date: 20240109
  Serious: Yes (Hospitalization)
  Sender: FDA-Public Use
  Company Number: FR-ROCHE-3241415

PATIENT
  Age: 53 Year
  Sex: Male
  Weight: 58.2 kg

DRUGS (16)
  1. PRALSETINIB [Suspect]
     Active Substance: PRALSETINIB
     Indication: Neuroendocrine carcinoma metastatic
     Dosage: START DATE OF MOST RECENT DOSE (400MG) OF STUDY DRUG (PRALSETINIB) PRIOR TO AE, SAE 05/NOV/2022.?STA
     Route: 048
     Dates: start: 20220927
  2. PRALSETINIB [Suspect]
     Active Substance: PRALSETINIB
     Indication: Adrenal gland cancer metastatic
  3. TESTOSTERONE [Concomitant]
     Active Substance: TESTOSTERONE
     Indication: Transgender operation
     Route: 030
  4. OXYCODONE HYDROCHLORIDE [Concomitant]
     Active Substance: OXYCODONE HYDROCHLORIDE
     Indication: Hepatomegaly
     Dosage: 6 OTHER
     Route: 042
     Dates: end: 20221121
  5. PREDNISOLONE SODIUM METAZOATE [Concomitant]
     Active Substance: PREDNISOLONE SODIUM METAZOATE
     Dosage: 60 OTHER
     Route: 042
  6. AMITRIPTYLINE HYDROCHLORIDE [Concomitant]
     Active Substance: AMITRIPTYLINE HYDROCHLORIDE
     Dosage: DISEASE RELATED PAIN
     Route: 048
  7. POTASSIUM CHLORIDE [Concomitant]
     Active Substance: POTASSIUM CHLORIDE
     Indication: Hypokalaemia
     Route: 048
  8. CALCIUM CARBONATE [Concomitant]
     Active Substance: CALCIUM CARBONATE
     Dosage: TO PREVENT OSTEOPOROSIS DUE TO?CORTICOSTEROIDS
     Route: 048
  9. METHADONE [Concomitant]
     Active Substance: METHADONE HYDROCHLORIDE
     Indication: Hepatomegaly
     Dates: start: 20221122
  10. HYDROCORTISONE [Concomitant]
     Active Substance: HYDROCORTISONE
     Indication: Hepatomegaly
     Dates: start: 202211
  11. PIPERACILLIN SODIUM\TAZOBACTAM SODIUM [Concomitant]
     Active Substance: PIPERACILLIN SODIUM\TAZOBACTAM SODIUM
     Indication: Pseudomonas infection
     Dates: start: 20221106, end: 20221110
  12. PIPERACILLIN SODIUM\TAZOBACTAM SODIUM [Concomitant]
     Active Substance: PIPERACILLIN SODIUM\TAZOBACTAM SODIUM
     Dates: start: 20191209, end: 20191219
  13. CIPROFLOXACIN [Concomitant]
     Active Substance: CIPROFLOXACIN
     Indication: Pseudomonas infection
     Dates: start: 20221109, end: 20221208
  14. LOVENOX [Concomitant]
     Active Substance: ENOXAPARIN SODIUM
     Indication: Prophylaxis
     Dates: start: 202211, end: 20221129
  15. ONDANSETRON [Concomitant]
     Active Substance: ONDANSETRON
     Indication: Vomiting
     Dates: start: 20221209, end: 20221210
  16. BACTRIM [Concomitant]
     Active Substance: SULFAMETHOXAZOLE\TRIMETHOPRIM
     Indication: Pneumocystis jirovecii pneumonia
     Route: 048
     Dates: start: 202306, end: 2023

REACTIONS (1)
  - Intervertebral discitis [Not Recovered/Not Resolved]

NARRATIVE: CASE EVENT DATE: 20230114
